FAERS Safety Report 6462191-0 (Version None)
Quarter: 2009Q4

REPORT INFORMATION
  Report Type: 
  Country: None (occurrence: None)
  Receive Date: 20091130
  Receipt Date: 20091117
  Transmission Date: 20100525
  Serious: Yes (Death)
  Sender: FDA-Public Use
  Company Number: AU-ELI_LILLY_AND_COMPANY-AU200911002198

PATIENT
  Sex: Male

DRUGS (3)
  1. CIALIS [Suspect]
     Indication: ERECTILE DYSFUNCTION
     Dosage: 20 MG, UNKNOWN
     Route: 065
     Dates: start: 20070904
  2. DITROPAN /00538902/ [Concomitant]
     Indication: POLLAKIURIA
     Dosage: 5 MG, UNKNOWN
     Route: 065
     Dates: start: 20070904
  3. ARGININE [Concomitant]
     Indication: ANGINA PECTORIS
     Dosage: UNK, DID NOT USE EVERY DAY
     Route: 065

REACTIONS (2)
  - MYOCARDIAL ISCHAEMIA [None]
  - OFF LABEL USE [None]
